FAERS Safety Report 24924187 (Version 2)
Quarter: 2025Q1

REPORT INFORMATION
  Report Type: Spontaneous
  Country: IT (occurrence: IT)
  Receive Date: 20250204
  Receipt Date: 20250312
  Transmission Date: 20250409
  Serious: Yes (Other)
  Sender: MYLAN
  Company Number: IT-FIDIA-20240806

PATIENT
  Age: 72 Year
  Sex: Female

DRUGS (32)
  1. AMLODIPINE [Suspect]
     Active Substance: AMLODIPINE BESYLATE
     Indication: Product used for unknown indication
  2. AMLODIPINE [Suspect]
     Active Substance: AMLODIPINE BESYLATE
     Route: 065
  3. AMLODIPINE [Suspect]
     Active Substance: AMLODIPINE BESYLATE
     Route: 065
  4. AMLODIPINE [Suspect]
     Active Substance: AMLODIPINE BESYLATE
  5. PERINDOPRIL [Suspect]
     Active Substance: PERINDOPRIL
     Indication: Product used for unknown indication
  6. PERINDOPRIL [Suspect]
     Active Substance: PERINDOPRIL
     Route: 065
  7. PERINDOPRIL [Suspect]
     Active Substance: PERINDOPRIL
     Route: 065
  8. PERINDOPRIL [Suspect]
     Active Substance: PERINDOPRIL
  9. BRIMONIDINE TARTRATE [Suspect]
     Active Substance: BRIMONIDINE TARTRATE
     Indication: Conjunctivitis
     Dosage: UNK, BID (1 DROP IN THE AFTERNOON)
     Dates: start: 202404, end: 202404
  10. BRIMONIDINE TARTRATE [Suspect]
     Active Substance: BRIMONIDINE TARTRATE
     Indication: Glaucoma
     Dosage: UNK, BID (1 DROP IN THE AFTERNOON)
     Dates: start: 202404, end: 202404
  11. BRIMONIDINE TARTRATE [Suspect]
     Active Substance: BRIMONIDINE TARTRATE
     Dosage: UNK, BID (1 DROP IN THE AFTERNOON)
     Route: 065
     Dates: start: 202404, end: 202404
  12. BRIMONIDINE TARTRATE [Suspect]
     Active Substance: BRIMONIDINE TARTRATE
     Dosage: UNK, BID (1 DROP IN THE AFTERNOON)
     Route: 065
     Dates: start: 202404, end: 202404
  13. BRIMONIDINE TARTRATE [Suspect]
     Active Substance: BRIMONIDINE TARTRATE
     Dosage: 1 DROP, QD
     Dates: start: 202404, end: 20241214
  14. BRIMONIDINE TARTRATE [Suspect]
     Active Substance: BRIMONIDINE TARTRATE
     Dosage: 1 DROP, QD
     Dates: start: 202404, end: 20241214
  15. BRIMONIDINE TARTRATE [Suspect]
     Active Substance: BRIMONIDINE TARTRATE
     Dosage: 1 DROP, QD
     Route: 065
     Dates: start: 202404, end: 20241214
  16. BRIMONIDINE TARTRATE [Suspect]
     Active Substance: BRIMONIDINE TARTRATE
     Dosage: 1 DROP, QD
     Route: 065
     Dates: start: 202404, end: 20241214
  17. BRINZOLAMIDE\TIMOLOL MALEATE [Suspect]
     Active Substance: BRINZOLAMIDE\TIMOLOL MALEATE
     Indication: Product used for unknown indication
     Dosage: 1 DOSAGE FORM, BID (TWO TIMES A DAY IN BOTH EYES)
  18. BRINZOLAMIDE\TIMOLOL MALEATE [Suspect]
     Active Substance: BRINZOLAMIDE\TIMOLOL MALEATE
     Dosage: 1 DOSAGE FORM, BID (TWO TIMES A DAY IN BOTH EYES)
     Route: 047
  19. BRINZOLAMIDE\TIMOLOL MALEATE [Suspect]
     Active Substance: BRINZOLAMIDE\TIMOLOL MALEATE
     Dosage: 1 DOSAGE FORM, BID (TWO TIMES A DAY IN BOTH EYES)
     Route: 047
  20. BRINZOLAMIDE\TIMOLOL MALEATE [Suspect]
     Active Substance: BRINZOLAMIDE\TIMOLOL MALEATE
     Dosage: 1 DOSAGE FORM, BID (TWO TIMES A DAY IN BOTH EYES)
  21. AZARGA [Suspect]
     Active Substance: BRINZOLAMIDE\TIMOLOL MALEATE
     Indication: Product used for unknown indication
  22. AZARGA [Suspect]
     Active Substance: BRINZOLAMIDE\TIMOLOL MALEATE
     Route: 065
  23. AZARGA [Suspect]
     Active Substance: BRINZOLAMIDE\TIMOLOL MALEATE
     Route: 065
  24. AZARGA [Suspect]
     Active Substance: BRINZOLAMIDE\TIMOLOL MALEATE
  25. IZBA [Suspect]
     Active Substance: TRAVOPROST
     Indication: Product used for unknown indication
     Dosage: UNK, QD (AT THE EVENING IN BOTH EYES )
  26. IZBA [Suspect]
     Active Substance: TRAVOPROST
     Dosage: UNK, QD (AT THE EVENING IN BOTH EYES )
     Route: 065
  27. IZBA [Suspect]
     Active Substance: TRAVOPROST
     Dosage: UNK, QD (AT THE EVENING IN BOTH EYES )
     Route: 065
  28. IZBA [Suspect]
     Active Substance: TRAVOPROST
     Dosage: UNK, QD (AT THE EVENING IN BOTH EYES )
  29. Myrialen [Concomitant]
  30. Myrialen [Concomitant]
     Route: 065
  31. Myrialen [Concomitant]
     Route: 065
  32. Myrialen [Concomitant]

REACTIONS (6)
  - Drug hypersensitivity [Recovered/Resolved]
  - Lacrimation increased [Recovered/Resolved]
  - Ocular hyperaemia [Recovered/Resolved]
  - Eye pruritus [Recovered/Resolved]
  - Blood pressure decreased [Recovered/Resolved]
  - Hypotension [Recovered/Resolved]

NARRATIVE: CASE EVENT DATE: 20240401
